FAERS Safety Report 7419807-1 (Version None)
Quarter: 2011Q2

REPORT INFORMATION
  Report Type: 
  Country: None (occurrence: None)
  Receive Date: 20110413
  Receipt Date: 20110413
  Transmission Date: 20111010
  Serious: Yes (Hospitalization)
  Sender: FDA-Public Use
  Company Number: None

PATIENT
  Age: 61 Year
  Sex: Female
  Weight: 68.0396 kg

DRUGS (2)
  1. ACTONEL [Suspect]
     Indication: OSTEOPOROSIS
     Dosage: 1 MONTH
     Dates: start: 20110228
  2. ACTONEL [Suspect]
     Indication: OSTEOPOROSIS
     Dosage: 1 MONTH
     Dates: start: 20110328

REACTIONS (5)
  - DYSPEPSIA [None]
  - PAIN IN EXTREMITY [None]
  - CHEST PAIN [None]
  - MUSCULOSKELETAL PAIN [None]
  - MYALGIA [None]
